FAERS Safety Report 8445086-2 (Version None)
Quarter: 2012Q2

REPORT INFORMATION
  Report Type: 
  Country: None (occurrence: None)
  Receive Date: 20120618
  Receipt Date: 20120612
  Transmission Date: 20120825
  Serious: Yes (Death, Hospitalization)
  Sender: FDA-Public Use
  Company Number: SE-ROCHE-1071095

PATIENT

DRUGS (2)
  1. AVASTIN [Suspect]
     Indication: COLORECTAL CANCER METASTATIC
     Dosage: LAST DOSE PRIOR TO EVENT WAS ON 03 MAY 2012
     Dates: start: 20110122
  2. TARCEVA [Suspect]
     Indication: COLORECTAL CANCER METASTATIC
     Dosage: LAST DOSE PRIOR TO EVENT WAS ON 03 MAY 2012
     Route: 048
     Dates: start: 20110122

REACTIONS (3)
  - GENERAL PHYSICAL HEALTH DETERIORATION [None]
  - INFECTION [None]
  - HEPATIC FUNCTION ABNORMAL [None]
